FAERS Safety Report 9175678 (Version 1)
Quarter: 2013Q1

REPORT INFORMATION
  Report Type: Spontaneous
  Country: US (occurrence: US)
  Receive Date: 20130320
  Receipt Date: 20130320
  Transmission Date: 20140127
  Serious: Yes (Death)
  Sender: FDA-Public Use
  Company Number: US-JNJFOC-1999002044US

PATIENT
  Age: 49 Year
  Sex: Female

DRUGS (4)
  1. MOTRIN [Suspect]
     Indication: COMPLETED SUICIDE
     Route: 048
  2. THEOPHYLLINE [Suspect]
     Indication: COMPLETED SUICIDE
     Route: 048
  3. DILTIAZEM [Suspect]
     Indication: COMPLETED SUICIDE
  4. SERTRALINE [Suspect]
     Indication: COMPLETED SUICIDE

REACTIONS (6)
  - Completed suicide [Fatal]
  - Atrioventricular block [Fatal]
  - Hypokalaemia [Fatal]
  - Tachycardia [Fatal]
  - Vasodilation procedure [Fatal]
  - Dehydration [Fatal]
